FAERS Safety Report 14878264 (Version 1)
Quarter: 2018Q2

REPORT INFORMATION
  Report Type: Report from Study
  Country: None (occurrence: US)
  Receive Date: 20180511
  Receipt Date: 20180511
  Transmission Date: 20180711
  Serious: Yes (Other)
  Sender: FDA-Public Use
  Company Number: US-ABBVIE-17K-163-1971613-00

PATIENT
  Sex: Female

DRUGS (3)
  1. HUMIRA [Suspect]
     Active Substance: ADALIMUMAB
     Route: 058
     Dates: start: 201711, end: 201804
  2. HUMIRA [Suspect]
     Active Substance: ADALIMUMAB
     Indication: RHEUMATOID ARTHRITIS
     Route: 058
     Dates: start: 20170505, end: 2017
  3. HUMIRA [Suspect]
     Active Substance: ADALIMUMAB
     Route: 058
     Dates: start: 2018

REACTIONS (26)
  - Asthma [Unknown]
  - Gait disturbance [Not Recovered/Not Resolved]
  - Grip strength decreased [Unknown]
  - Trigger finger [Unknown]
  - Chills [Recovering/Resolving]
  - Post procedural swelling [Unknown]
  - Injection site haemorrhage [Recovering/Resolving]
  - Injection site bruising [Recovering/Resolving]
  - Arthralgia [Recovered/Resolved]
  - Nasopharyngitis [Recovered/Resolved]
  - Peripheral swelling [Recovered/Resolved]
  - Injection site pain [Unknown]
  - Myalgia [Recovering/Resolving]
  - Peripheral swelling [Recovering/Resolving]
  - Pain in extremity [Unknown]
  - Joint swelling [Recovered/Resolved]
  - Joint swelling [Recovered/Resolved]
  - Musculoskeletal stiffness [Recovering/Resolving]
  - Chest discomfort [Recovering/Resolving]
  - Arthralgia [Recovered/Resolved]
  - Pain in extremity [Recovered/Resolved]
  - Fatigue [Recovering/Resolving]
  - Joint stiffness [Not Recovered/Not Resolved]
  - Pain in extremity [Recovered/Resolved]
  - Thyroid mass [Unknown]
  - Foot deformity [Unknown]

NARRATIVE: CASE EVENT DATE: 2017
